FAERS Safety Report 23556101 (Version 2)
Quarter: 2024Q1

REPORT INFORMATION
  Report Type: Report from Study
  Country: CL (occurrence: CL)
  Receive Date: 20240222
  Receipt Date: 20240330
  Transmission Date: 20240409
  Serious: Yes (Other)
  Sender: FDA-Public Use
  Company Number: CL-JNJFOC-20240243705

PATIENT
  Age: 50 Year
  Sex: Female

DRUGS (1)
  1. SIMPONI [Suspect]
     Active Substance: GOLIMUMAB
     Indication: Rheumatoid arthritis
     Dosage: PATIENT LAST ADHERENCE  27-DEC-2023
     Route: 058
     Dates: start: 20230426

REACTIONS (4)
  - Heavy menstrual bleeding [Unknown]
  - Rheumatoid arthritis [Not Recovered/Not Resolved]
  - Anaemia [Unknown]
  - Drug ineffective [Unknown]
